FAERS Safety Report 11893091 (Version 1)
Quarter: 2016Q1

REPORT INFORMATION
  Report Type: Spontaneous
  Country: GB (occurrence: GB)
  Receive Date: 20160106
  Receipt Date: 20160106
  Transmission Date: 20160526
  Serious: Yes (Other)
  Sender: FDA-Public Use
  Company Number: GB-009507513-1601GBR000425

PATIENT
  Age: 15 Year
  Sex: Female
  Weight: 77 kg

DRUGS (8)
  1. ACYCLOVIR. [Concomitant]
     Active Substance: ACYCLOVIR
  2. MEROPENEM. [Concomitant]
     Active Substance: MEROPENEM
  3. CLONIDINE. [Concomitant]
     Active Substance: CLONIDINE
  4. CYCLOSPORINE. [Concomitant]
     Active Substance: CYCLOSPORINE
  5. VORICONAZOLE. [Concomitant]
     Active Substance: VORICONAZOLE
  6. MYCOPHENOLIC ACID. [Concomitant]
     Active Substance: MYCOPHENOLIC ACID
  7. RIBAVIRIN. [Suspect]
     Active Substance: RIBAVIRIN
     Indication: RESPIRATORY SYNCYTIAL VIRUS INFECTION
     Dosage: DAILY DOSE: 3.6 G GRAM(S) EVERY DAYS
     Route: 042
     Dates: start: 20151218, end: 20151219
  8. METOCLOPRAMIDE. [Concomitant]
     Active Substance: METOCLOPRAMIDE

REACTIONS (1)
  - Generalised tonic-clonic seizure [Recovered/Resolved]

NARRATIVE: CASE EVENT DATE: 20151219
